FAERS Safety Report 8115450-X (Version None)
Quarter: 2012Q1

REPORT INFORMATION
  Report Type: 
  Country: None (occurrence: None)
  Receive Date: 20120201
  Receipt Date: 20120120
  Transmission Date: 20120608
  Serious: Yes (Hospitalization)
  Sender: FDA-Public Use
  Company Number: AUR-APL-2012-00685

PATIENT
  Age: 70 Year
  Sex: Female
  Weight: 118 kg

DRUGS (5)
  1. ATIVAN [Concomitant]
  2. LEXAPRO [Concomitant]
  3. ZYRTEC [Concomitant]
  4. LIPITOR [Suspect]
     Indication: BLOOD CHOLESTEROL INCREASED
     Dosage: (10 MG,1 D),ORAL
     Route: 048
  5. TRANDOLAPRIL [Suspect]
     Indication: BLOOD PRESSURE ABNORMAL
     Dosage: (4 MG,1 ID)
     Dates: end: 20111201

REACTIONS (2)
  - OXYGEN SATURATION DECREASED [None]
  - BLOOD PRESSURE FLUCTUATION [None]
